FAERS Safety Report 9998089 (Version 1)
Quarter: 2014Q1

REPORT INFORMATION
  Report Type: Spontaneous
  Country: DE (occurrence: DE)
  Receive Date: 20140311
  Receipt Date: 20140311
  Transmission Date: 20141002
  Serious: Yes (Other)
  Sender: FDA-Public Use
  Company Number: DE-BAXTER-2014BAX011875

PATIENT
  Age: 60 Year
  Sex: Male

DRUGS (4)
  1. FEIBA NF 500 E [Suspect]
     Indication: ACQUIRED HAEMOPHILIA
     Route: 065
     Dates: start: 201109
  2. ENDOXAN 1G [Suspect]
     Indication: IMMUNOSUPPRESSION
     Route: 065
     Dates: start: 2011
  3. NOVOSEVEN [Suspect]
     Indication: ACQUIRED HAEMOPHILIA
     Dosage: HIGH DOSAGE
     Route: 065
     Dates: start: 2011
  4. RITUXIMAB [Suspect]
     Indication: IMMUNOSUPPRESSION
     Route: 065
     Dates: start: 2011

REACTIONS (2)
  - Haemorrhage [Recovered/Resolved]
  - Drug ineffective [Recovered/Resolved]
